FAERS Safety Report 4337717-3 (Version None)
Quarter: 2004Q2

REPORT INFORMATION
  Report Type: 
  Country: None (occurrence: None)
  Receive Date: 20040413
  Receipt Date: 20040322
  Transmission Date: 20050107
  Serious: Yes (Life-Threatening, Disabling)
  Sender: FDA-Public Use
  Company Number: US-ROCHE-362675

PATIENT
  Age: 14 Week
  Sex: Male
  Weight: 4.8 kg

DRUGS (1)
  1. ROCEPHIN [Suspect]
     Indication: MENINGITIS
     Route: 030
     Dates: start: 20030115, end: 20030115

REACTIONS (5)
  - BLINDNESS [None]
  - FALL [None]
  - HAEMORRHAGE INTRACRANIAL [None]
  - PLATELET COUNT DECREASED [None]
  - RETINAL HAEMORRHAGE [None]
